FAERS Safety Report 7193062-2 (Version None)
Quarter: 2010Q4

REPORT INFORMATION
  Report Type: 
  Country: None (occurrence: None)
  Receive Date: 20101223
  Receipt Date: 20100831
  Transmission Date: 20110411
  Serious: No
  Sender: FDA-Public Use
  Company Number: US-AMGEN-KDL435197

PATIENT

DRUGS (12)
  1. ENBREL [Suspect]
     Indication: PRODUCT USED FOR UNKNOWN INDICATION
     Dosage: 50 MG, QWK
     Route: 058
  2. NAPROXEN [Concomitant]
     Dosage: 250 MG, UNK
  3. METHOTREXATE [Concomitant]
     Dosage: 2.5 MG, UNK
  4. FEXOFENADINE HCL [Concomitant]
     Dosage: UNK UNK, UNK
  5. PSEUDOEPHEDRINE HYDROCHLORIDE [Concomitant]
     Dosage: UNK UNK, UNK
  6. CYCLOBENZAPRINE [Concomitant]
     Dosage: 10 MG, UNK
  7. FOLIC ACID [Concomitant]
     Dosage: 1 MG, UNK
  8. BIOTIN [Concomitant]
     Dosage: 400 A?G, UNK
  9. FISH OIL [Concomitant]
     Dosage: UNK UNK, UNK
  10. ERGOCALCIFEROL [Concomitant]
     Dosage: 1000 IU, UNK
  11. VITAMIN B COMPLEX [Concomitant]
     Dosage: UNK UNK, UNK
  12. MULTI-VITAMINS [Concomitant]
     Dosage: UNK UNK, UNK

REACTIONS (5)
  - INJECTION SITE ERYTHEMA [None]
  - INJECTION SITE PRURITUS [None]
  - INJECTION SITE REACTION [None]
  - INJECTION SITE SWELLING [None]
  - INJECTION SITE WARMTH [None]
